FAERS Safety Report 17751635 (Version 2)
Quarter: 2021Q4

REPORT INFORMATION
  Report Type: Report from Study
  Country: NL (occurrence: NL)
  Receive Date: 20200506
  Receipt Date: 20211221
  Transmission Date: 20220303
  Serious: Yes (Hospitalization, Other)
  Sender: FDA-Public Use
  Company Number: NL-002147023-NVSC2020NL105171

PATIENT
  Age: 74 Year
  Sex: Male

DRUGS (3)
  1. CYTARABINE [Suspect]
     Active Substance: CYTARABINE
     Dosage: 400 MG, 1X/DAY (DATE OF LAST DOSE 07FEB2020)
     Route: 065
     Dates: start: 20200201, end: 20200207
  2. RYDAPT [Suspect]
     Active Substance: MIDOSTAURIN
     Dosage: 100 MG, 1X/DAY (DATE OF LAST DOSE 22FEB2020)
     Route: 065
     Dates: start: 20200208, end: 20200222
  3. DAUNORUBICIN [Suspect]
     Active Substance: DAUNORUBICIN
     Dosage: 120 MG, 1X/DAY (DATE OF LAST DOSE 03FEB2020)
     Route: 065
     Dates: start: 20200201, end: 20200203

REACTIONS (1)
  - Chest pain [Recovered/Resolved]

NARRATIVE: CASE EVENT DATE: 20200217
